FAERS Safety Report 8385803-3 (Version None)
Quarter: 2012Q2

REPORT INFORMATION
  Report Type: 
  Country: None (occurrence: None)
  Receive Date: 20120523
  Receipt Date: 20120510
  Transmission Date: 20120825
  Serious: Yes (Other)
  Sender: FDA-Public Use
  Company Number: 2012SP024956

PATIENT
  Age: 52 Year
  Sex: Female

DRUGS (3)
  1. TIZANIDINE HYDROCHLORIDE [Suspect]
     Indication: PRODUCT USED FOR UNKNOWN INDICATION
     Dosage: 4 MG;ONCE;PO
     Route: 048
     Dates: start: 20120203, end: 20120203
  2. REMERON [Suspect]
     Indication: PRODUCT USED FOR UNKNOWN INDICATION
     Dosage: 30 MG;ONCE;PO
     Route: 048
     Dates: start: 20120203, end: 20120203
  3. QUETIAPINE [Suspect]
     Indication: PRODUCT USED FOR UNKNOWN INDICATION
     Dosage: 300 MG;ONCE;PO
     Route: 048
     Dates: start: 20120203, end: 20120203

REACTIONS (6)
  - COMA [None]
  - SUICIDE ATTEMPT [None]
  - MYDRIASIS [None]
  - MULTIPLE DRUG OVERDOSE INTENTIONAL [None]
  - ANTICHOLINERGIC SYNDROME [None]
  - TOXICITY TO VARIOUS AGENTS [None]
